APPROVED DRUG PRODUCT: VINBLASTINE SULFATE
Active Ingredient: VINBLASTINE SULFATE
Strength: 10MG/VIAL
Dosage Form/Route: INJECTABLE;INJECTION
Application: A089011 | Product #001
Applicant: ABRAXIS PHARMACEUTICAL PRODUCTS
Approved: Nov 18, 1985 | RLD: No | RS: No | Type: DISCN